FAERS Safety Report 5025106-8 (Version None)
Quarter: 2006Q2

REPORT INFORMATION
  Report Type: 
  Country: None (occurrence: None)
  Receive Date: 20060609
  Receipt Date: 20060609
  Transmission Date: 20061013
  Serious: Yes (Disabling)
  Sender: FDA-Public Use
  Company Number: None

PATIENT

DRUGS (2)
  1. FENTANYL [Suspect]
     Indication: CATHETERISATION CARDIAC
     Dosage: 100MCG ONCE IV
     Route: 042
     Dates: start: 20060608, end: 20060608
  2. MIDAZOLAM 2MG/2ML HOSPIRA [Suspect]
     Dosage: 2MG ONCE IV
     Route: 042

REACTIONS (1)
  - BLOOD PRESSURE DECREASED [None]
